FAERS Safety Report 24004742 (Version 1)
Quarter: 2024Q2

REPORT INFORMATION
  Report Type: Report from Study
  Country: CA (occurrence: CA)
  Receive Date: 20240624
  Receipt Date: 20240624
  Transmission Date: 20240717
  Serious: Yes (Hospitalization)
  Sender: FDA-Public Use
  Company Number: CA-GSK-CA2023103513

PATIENT

DRUGS (1)
  1. MEPOLIZUMAB [Suspect]
     Active Substance: MEPOLIZUMAB
     Indication: Asthma
     Dosage: 100 MG, Q4W
     Route: 058
     Dates: start: 20211214

REACTIONS (6)
  - Metabolic surgery [Unknown]
  - Hernia repair [Unknown]
  - Asthma [Unknown]
  - Dyspnoea exertional [Unknown]
  - Weight decreased [Unknown]
  - Off label use of device [Unknown]
